FAERS Safety Report 6123814-9 (Version None)
Quarter: 2009Q1

REPORT INFORMATION
  Report Type: 
  Country: None (occurrence: None)
  Receive Date: 20090317
  Receipt Date: 20090227
  Transmission Date: 20090719
  Serious: Yes (Hospitalization)
  Sender: FDA-Public Use
  Company Number: 530#6#2008-00001

PATIENT
  Sex: Female
  Weight: 70 kg

DRUGS (8)
  1. NEUPRO [Suspect]
     Indication: PARKINSON'S DISEASE
     Dosage: SEE IMAGE
     Route: 062
     Dates: start: 20060714, end: 20060716
  2. NEUPRO [Suspect]
     Indication: PARKINSON'S DISEASE
     Dosage: SEE IMAGE
     Route: 062
     Dates: start: 20060717, end: 20060719
  3. NEUPRO [Suspect]
     Indication: PARKINSON'S DISEASE
     Dosage: SEE IMAGE
     Route: 062
     Dates: start: 20060720, end: 20060726
  4. NEUPRO [Suspect]
     Indication: PARKINSON'S DISEASE
     Dosage: SEE IMAGE
     Route: 062
     Dates: start: 20060727
  5. CARBIDOPA AND LEVODOPA [Suspect]
     Indication: PARKINSON'S DISEASE
     Dosage: (100/25 MG (1-1-0.5-1 ORAL)
     Route: 048
     Dates: start: 20061124
  6. TRI-THIAZID [Concomitant]
  7. ACETYLSALICYLIC ACID [Concomitant]
  8. URSO FALK [Concomitant]

REACTIONS (1)
  - MYOCARDIAL INFARCTION [None]
